FAERS Safety Report 4380064-4 (Version None)
Quarter: 2004Q2

REPORT INFORMATION
  Report Type: 
  Country: None (occurrence: None)
  Receive Date: 20040614
  Receipt Date: 20040526
  Transmission Date: 20050107
  Serious: Yes (Life-Threatening)
  Sender: FDA-Public Use
  Company Number: DSA_24466_2004

PATIENT
  Sex: Male

DRUGS (3)
  1. TEVETEN [Suspect]
     Indication: HYPERTENSION
     Dosage: DF  PO
     Route: 048
  2. AMLODIPINE [Concomitant]
  3. VALSARTAN [Concomitant]

REACTIONS (1)
  - BRONCHOSPASM [None]
